FAERS Safety Report 8538590-X (Version None)
Quarter: 2012Q3

REPORT INFORMATION
  Report Type: 
  Country: None (occurrence: None)
  Receive Date: 20120726
  Receipt Date: 20120718
  Transmission Date: 20120928
  Serious: No
  Sender: FDA-Public Use
  Company Number: US-B.I. PHARMACEUTICALS,INC./RIDGEFIELD-2012-BP-16056BP

PATIENT
  Sex: Female

DRUGS (7)
  1. SPIRIVA [Suspect]
     Indication: CHRONIC OBSTRUCTIVE PULMONARY DISEASE
     Dosage: 18 MCG
     Route: 055
     Dates: start: 20100101
  2. NEURONTIN [Concomitant]
     Route: 048
  3. UNSURE [Concomitant]
     Indication: THYROID DISORDER
     Route: 048
  4. UNSURE [Concomitant]
     Route: 048
  5. UNSURE [Concomitant]
     Indication: HYPERTENSION
     Route: 048
  6. UNSURE [Concomitant]
     Route: 048
  7. SPIRIVA [Suspect]
     Route: 048
     Dates: start: 20120718, end: 20120718

REACTIONS (1)
  - INCORRECT ROUTE OF DRUG ADMINISTRATION [None]
